FAERS Safety Report 10245988 (Version 1)
Quarter: 2014Q2

REPORT INFORMATION
  Report Type: Spontaneous
  Country: US (occurrence: None)
  Receive Date: 20140617
  Receipt Date: 20140617
  Transmission Date: 20141212
  Serious: Yes (Other)
  Sender: FDA-Public Use
  Company Number: None

PATIENT
  Age: 54 Year
  Sex: Male
  Weight: 86.2 kg

DRUGS (10)
  1. GAMMAKED [Suspect]
     Indication: DEMYELINATING POLYNEUROPATHY
     Route: 042
     Dates: start: 20120904, end: 20140605
  2. DIPHENHYDRAMINE [Concomitant]
  3. METHVLPREDNISOLONE SODIUM [Concomitant]
  4. DEXTROSE [Concomitant]
  5. NORMAL SALINE IV FLUSH [Concomitant]
  6. NAPROXEN [Concomitant]
  7. ULTRAM [Concomitant]
  8. AMBIEN CR [Concomitant]
  9. CYANOCOBALAMIN [Concomitant]
  10. IMITREX [Concomitant]

REACTIONS (3)
  - Anaphylactoid reaction [None]
  - Chest discomfort [None]
  - Infusion related reaction [None]
